FAERS Safety Report 12899550 (Version 1)
Quarter: 2016Q4

REPORT INFORMATION
  Report Type: Spontaneous
  Country: CH (occurrence: FR)
  Receive Date: 20161101
  Receipt Date: 20161101
  Transmission Date: 20170207
  Serious: Yes (Other)
  Sender: FDA-Public Use
  Company Number: CH-LPDUSPRD-20160952

PATIENT
  Age: 77 Year
  Sex: Female
  Weight: 74 kg

DRUGS (1)
  1. FERINJECT [Suspect]
     Active Substance: FERRIC CARBOXYMALTOSE
     Dosage: 1 G, 1 IN TOTAL,UNK DILUTION
     Route: 041
     Dates: start: 20160706, end: 20160706

REACTIONS (4)
  - Hypotension [Unknown]
  - Nausea [Unknown]
  - Hypothermia [Unknown]
  - Malaise [Unknown]

NARRATIVE: CASE EVENT DATE: 20160706
